FAERS Safety Report 9097049 (Version 1)
Quarter: 2013Q1

REPORT INFORMATION
  Report Type: Spontaneous
  Country: AR (occurrence: None)
  Receive Date: 20130125
  Receipt Date: 20130125
  Transmission Date: 20140127
  Serious: Yes (Hospitalization, Other)
  Sender: FDA-Public Use
  Company Number: 2013P1000830

PATIENT
  Age: 30 Year
  Sex: Female

DRUGS (6)
  1. ISONIAZID [Suspect]
     Indication: LYMPH NODE TUBERCULOSIS
     Dosage: ?UNKNOWN  -  UNKNOWN
  2. ISONIAZID [Suspect]
     Indication: PULMONARY TUBERCULOSIS
     Dosage: ?UNKNOWN  -  UNKNOWN
  3. ETHAMBUTOL [Suspect]
     Indication: LYMPH NODE TUBERCULOSIS
     Dosage: ?UNKNOWN  -  UNKNOWN
  4. ETHAMBUTOL [Suspect]
     Indication: PULMONARY TUBERCULOSIS
     Dosage: ?UNKNOWN  -  UNKNOWN
  5. RIFAMPICIN [Concomitant]
  6. PYRAZINAMIDE [Concomitant]

REACTIONS (3)
  - Drug reaction with eosinophilia and systemic symptoms [None]
  - Hepatitis toxic [None]
  - Eosinophilia [None]
